FAERS Safety Report 8165906-9 (Version None)
Quarter: 2012Q1

REPORT INFORMATION
  Report Type: 
  Country: None (occurrence: None)
  Receive Date: 20120227
  Receipt Date: 20111106
  Transmission Date: 20120608
  Serious: Yes (Other)
  Sender: FDA-Public Use
  Company Number: US-MYLANLABS-2011S1022915

PATIENT
  Sex: Male

DRUGS (5)
  1. ACCUTANE [Suspect]
     Route: 048
     Dates: start: 20050301, end: 20050801
  2. ACCUTANE [Suspect]
     Indication: ACNE
     Route: 048
     Dates: start: 20040301, end: 20040801
  3. CLARAVIS [Suspect]
     Indication: ACNE
     Route: 048
     Dates: start: 20040301, end: 20040801
  4. AMNESTEEM [Suspect]
     Indication: ACNE
     Route: 048
     Dates: start: 20040301, end: 20040801
  5. SOTRET [Suspect]
     Indication: ACNE
     Route: 048
     Dates: start: 20040301, end: 20040801

REACTIONS (1)
  - INFLAMMATORY BOWEL DISEASE [None]
